FAERS Safety Report 9008131 (Version 1)
Quarter: 2012Q4

REPORT INFORMATION
  Report Type: Spontaneous
  Country: JP (occurrence: None)
  Receive Date: 20121227
  Receipt Date: 20121227
  Transmission Date: 20130627
  Serious: Yes (Life-Threatening, Hospitalization)
  Sender: FDA-Public Use
  Company Number: 2012P1067871

PATIENT
  Age: 77 Year
  Sex: Male

DRUGS (3)
  1. ZANTAC 2ML VIAL (NO PREF. NAME) [Suspect]
     Route: 042
     Dates: start: 201211, end: 201211
  2. PACLITAXEL [Concomitant]
  3. SODIUM CHLORIDE [Concomitant]

REACTIONS (4)
  - Anaphylactic reaction [None]
  - Depressed level of consciousness [None]
  - Nausea [None]
  - Incontinence [None]
